FAERS Safety Report 12742022 (Version 1)
Quarter: 2016Q3

REPORT INFORMATION
  Report Type: Spontaneous
  Country: FR (occurrence: None)
  Receive Date: 20160913
  Receipt Date: 20160913
  Transmission Date: 20161109
  Serious: Yes (Hospitalization)
  Sender: FDA-Public Use
  Company Number: FR-ALSI-201600238

PATIENT
  Age: 43 Year
  Sex: Female
  Weight: 50 kg

DRUGS (7)
  1. OXYGEN. [Concomitant]
     Active Substance: OXYGEN
  2. NITROUS OXIDE. [Concomitant]
     Active Substance: NITROUS OXIDE
  3. CARBON DIOXIDE. [Suspect]
     Active Substance: CARBON DIOXIDE
     Indication: LAPAROSCOPY
     Route: 033
  4. PROPOFOL. [Concomitant]
     Active Substance: PROPOFOL
  5. FENTANYL. [Concomitant]
     Active Substance: FENTANYL
  6. VECURONIUM [Concomitant]
     Active Substance: VECURONIUM BROMIDE
  7. ISOFLURANE. [Concomitant]
     Active Substance: ISOFLURANE

REACTIONS (4)
  - Anxiety [None]
  - Air embolism [None]
  - Ventricular tachycardia [None]
  - Blindness transient [None]
